FAERS Safety Report 4721455-9 (Version None)
Quarter: 2005Q3

REPORT INFORMATION
  Report Type: 
  Country: None (occurrence: None)
  Receive Date: 20050721
  Receipt Date: 20040915
  Transmission Date: 20060218
  Serious: Yes (Other)
  Sender: FDA-Public Use
  Company Number: US-BRISTOL-MYERS SQUIBB COMPANY-12703344

PATIENT
  Age: 48 Year
  Sex: Female
  Weight: 57 kg

DRUGS (4)
  1. COUMADIN [Suspect]
     Indication: HEART VALVE REPLACEMENT
     Dosage: 5MG ONCE DAILY M,T,R,F+SAT AND 7.5MG ONCE DAILY(NOT CONFIRMED IF W+SUN); 7.5MG=9/11, 5MG=9/12-9/15
     Route: 048
  2. CRESTOR [Concomitant]
  3. LANOXIN [Concomitant]
  4. COMBIPATCH [Concomitant]

REACTIONS (3)
  - INTERNATIONAL NORMALISED RATIO INCREASED [None]
  - PAIN [None]
  - PROTHROMBIN TIME PROLONGED [None]
